FAERS Safety Report 7256193-4 (Version None)
Quarter: 2011Q1

REPORT INFORMATION
  Report Type: 
  Country: None (occurrence: None)
  Receive Date: 20110129
  Receipt Date: 20100724
  Transmission Date: 20110831
  Serious: No
  Sender: FDA-Public Use
  Company Number: US-ABBOTT-10P-163-0622586-00

PATIENT
  Sex: Female
  Weight: 59.02 kg

DRUGS (4)
  1. ZOLOFT [Concomitant]
     Indication: DEPRESSION
  2. BC PILLS [Concomitant]
     Indication: PRODUCT USED FOR UNKNOWN INDICATION
  3. HUMIRA [Suspect]
     Indication: CROHN'S DISEASE
     Dosage: DAY 1
     Dates: start: 20100123, end: 20100123
  4. HUMIRA [Suspect]

REACTIONS (4)
  - FATIGUE [None]
  - NAUSEA [None]
  - ASTHENIA [None]
  - PYREXIA [None]
